FAERS Safety Report 22041914 (Version 1)
Quarter: 2023Q1

REPORT INFORMATION
  Report Type: Report from Study
  Country: US (occurrence: US)
  Receive Date: 20230227
  Receipt Date: 20230227
  Transmission Date: 20230418
  Serious: Yes (Other)
  Sender: FDA-Public Use
  Company Number: US-TAKEDA-US201909177

PATIENT
  Sex: Female

DRUGS (1)
  1. HUMAN IMMUNOGLOBULIN G [Suspect]
     Active Substance: HUMAN IMMUNOGLOBULIN G
     Indication: Primary immunodeficiency syndrome
     Dosage: 500 MILLIGRAM, Q3WEEKS
     Route: 042

REACTIONS (4)
  - Non-small cell lung cancer [Unknown]
  - Illness [Unknown]
  - Insurance issue [Unknown]
  - Malaise [Unknown]
